FAERS Safety Report 18713377 (Version 1)
Quarter: 2021Q1

REPORT INFORMATION
  Report Type: Spontaneous
  Country: US (occurrence: US)
  Receive Date: 20210107
  Receipt Date: 20210107
  Transmission Date: 20210419
  Serious: Yes (Other)
  Sender: FDA-Public Use
  Company Number: US-GLAXOSMITHKLINE-US2021GSK002860

PATIENT
  Sex: Female

DRUGS (6)
  1. RANITIDINE. [Suspect]
     Active Substance: RANITIDINE
     Dosage: UNK UNK, PRN
     Route: 065
     Dates: start: 198001, end: 200801
  2. RANITIDINE. [Suspect]
     Active Substance: RANITIDINE
     Dosage: UNK, PRN
     Route: 065
     Dates: start: 198001, end: 200801
  3. RANITIDINE CAPSULE [Suspect]
     Active Substance: RANITIDINE
     Dosage: UNK UNK, PRN
     Route: 065
     Dates: start: 198001, end: 200801
  4. ZANTAC [Suspect]
     Active Substance: RANITIDINE HYDROCHLORIDE
     Dosage: UNK UNK, PRN
     Route: 065
     Dates: start: 198001, end: 200801
  5. RANITIDINE. [Suspect]
     Active Substance: RANITIDINE
     Dosage: UNK, PRN
     Route: 065
     Dates: start: 198001, end: 200801
  6. ZANTAC [Suspect]
     Active Substance: RANITIDINE HYDROCHLORIDE
     Dosage: UNK UNK, PRN
     Route: 065
     Dates: start: 198001, end: 200801

REACTIONS (1)
  - Breast cancer [Unknown]
